FAERS Safety Report 8624382-X (Version None)
Quarter: 2012Q3

REPORT INFORMATION
  Report Type: 
  Country: None (occurrence: None)
  Receive Date: 20120827
  Receipt Date: 20120822
  Transmission Date: 20120928
  Serious: Yes (Hospitalization)
  Sender: FDA-Public Use
  Company Number: US-PFIZER INC-2012206525

PATIENT
  Age: 42 Year
  Sex: Female
  Weight: 59.864 kg

DRUGS (4)
  1. FLEXERIL [Concomitant]
     Indication: MUSCLE SPASMS
     Dosage: 10 MG, 3X/DAY
  2. LYRICA [Suspect]
     Indication: SCIATICA
     Dosage: 50 MG, 2X/DAY
     Route: 048
     Dates: start: 20120201, end: 20120301
  3. LYRICA [Suspect]
     Dosage: 75 MG, 2X/DAY
     Route: 048
     Dates: start: 20120301, end: 20120801
  4. PERCOCET [Concomitant]
     Dosage: 7.5/325 MG, 4X/DAY

REACTIONS (5)
  - DRUG INEFFECTIVE [None]
  - HEART RATE INCREASED [None]
  - MYOCARDIAL INFARCTION [None]
  - NEURALGIA [None]
  - WEIGHT INCREASED [None]
